FAERS Safety Report 7197873 (Version 5)
Quarter: 2014Q1

REPORT INFORMATION
  Report Type: Spontaneous
  Country: US (occurrence: US)
  Receive Date: 20070703
  Receipt Date: 20140317
  Transmission Date: 20141002
  Serious: Yes (Hospitalization)
  Sender: FDA-Public Use
  Company Number: US-BIOGENIDEC-2007BI013625

PATIENT
  Age: 45 Year
  Sex: Male
  Weight: 77 kg

DRUGS (2)
  1. AVONEX [Suspect]
     Indication: MULTIPLE SCLEROSIS
     Route: 030
     Dates: start: 19981123
  2. AVONEX [Suspect]
     Indication: MULTIPLE SCLEROSIS
     Route: 030
     Dates: start: 20030825

REACTIONS (10)
  - Peroneal nerve palsy [Unknown]
  - Gait disturbance [Unknown]
  - Intervertebral disc disorder [Recovered/Resolved]
  - Fear of injection [Unknown]
  - Mobility decreased [Unknown]
  - Fall [Recovered/Resolved]
  - Stress [Unknown]
  - Depression [Unknown]
  - Influenza like illness [Unknown]
  - Arthralgia [Unknown]
